FAERS Safety Report 24225502 (Version 1)
Quarter: 2024Q3

REPORT INFORMATION
  Report Type: Spontaneous
  Country: US (occurrence: US)
  Receive Date: 20240820
  Receipt Date: 20240820
  Transmission Date: 20241016
  Serious: No
  Sender: PADAGIS
  Company Number: US-PADAGIS-2024PAD01283

PATIENT

DRUGS (10)
  1. MINOXIDIL [Suspect]
     Active Substance: MINOXIDIL
     Indication: Lichen planopilaris
     Dosage: UNK
     Route: 061
  2. MINOXIDIL [Suspect]
     Active Substance: MINOXIDIL
     Dosage: 5 MG, QD
     Route: 048
  3. CLOBETASOL PROPIONATE [Suspect]
     Active Substance: CLOBETASOL PROPIONATE
     Indication: Lichen planopilaris
     Dosage: UNK
     Route: 061
  4. DOXYCYCLINE HYCLATE [Suspect]
     Active Substance: DOXYCYCLINE HYCLATE
     Indication: Lichen planopilaris
     Dosage: 100 MG, BID
     Route: 065
  5. HYDROXYCHLOROQUINE [Suspect]
     Active Substance: HYDROXYCHLOROQUINE
     Indication: Lichen planopilaris
     Dosage: 200 MG, BID
     Route: 065
  6. TRIAMCINOLONE [Suspect]
     Active Substance: TRIAMCINOLONE
     Indication: Lichen planopilaris
     Dosage: UNK
     Route: 026
  7. TRIAMCINOLONE [Suspect]
     Active Substance: TRIAMCINOLONE
     Indication: Alopecia areata
  8. TACROLIMUS [Suspect]
     Active Substance: TACROLIMUS
     Indication: Lichen planopilaris
     Dosage: MIXED WITH CETAPHIL CLEANER
     Route: 065
  9. PIOGLITAZONE [Suspect]
     Active Substance: PIOGLITAZONE
     Indication: Lichen planopilaris
     Dosage: 15 MG, QD
     Route: 065
  10. DUTASTERIDE [Suspect]
     Active Substance: DUTASTERIDE
     Indication: Lichen planopilaris
     Dosage: 0.5 MG, QD
     Route: 065

REACTIONS (3)
  - Disease recurrence [Unknown]
  - Therapy partial responder [Unknown]
  - Drug ineffective for unapproved indication [Unknown]
